FAERS Safety Report 8907459 (Version 1)
Quarter: 2012Q4

REPORT INFORMATION
  Report Type: 
  Country: US (occurrence: US)
  Receive Date: 20121114
  Receipt Date: 20121114
  Transmission Date: 20130627
  Serious: Yes (Hospitalization)
  Sender: FDA-Public Use
  Company Number: PHEH2012US019016

PATIENT
  Sex: Female
  Weight: 124 kg

DRUGS (3)
  1. RECLAST [Suspect]
     Indication: OSTEOPOROSIS
     Dosage: UNK
     Dates: start: 201111
  2. TRAMADOL [Concomitant]
     Indication: PAIN
     Dosage: UNK UKN, PRN
     Route: 048
  3. XANAX [Concomitant]
     Indication: ANXIETY
     Dosage: UNK UKN, PRN
     Route: 048

REACTIONS (9)
  - Diverticulitis [Unknown]
  - Migraine [Recovered/Resolved]
  - Tinnitus [Recovered/Resolved]
  - Bone disorder [Unknown]
  - Nausea [Recovered/Resolved]
  - Vomiting [Recovered/Resolved]
  - Bone pain [Unknown]
  - Pain [Unknown]
  - Malaise [Unknown]
